FAERS Safety Report 7162292-8 (Version None)
Quarter: 2010Q4

REPORT INFORMATION
  Report Type: 
  Country: None (occurrence: None)
  Receive Date: 20101215
  Receipt Date: 20101203
  Transmission Date: 20110411
  Serious: Yes (Death)
  Sender: FDA-Public Use
  Company Number: US-ROCHE-746224

PATIENT
  Sex: Male
  Weight: 90.5 kg

DRUGS (4)
  1. TOCILIZUMAB [Suspect]
     Indication: RHEUMATOID ARTHRITIS
     Dosage: FORM: IV BAG; LAST DOSE ON 23 NOV 2010
     Route: 042
     Dates: start: 20100902
  2. PLACEBO [Suspect]
     Indication: RHEUMATOID ARTHRITIS
     Dosage: FORM:SYRINGE; FREQUENCY:Q2S;LAST DOSE ON 23 NOV 2010
     Route: 058
     Dates: start: 20100902
  3. ALEVE (CAPLET) [Concomitant]
     Dates: start: 20000630, end: 20101203
  4. FOLIC ACID [Concomitant]
     Dates: start: 20090415, end: 20101203

REACTIONS (1)
  - SUDDEN DEATH [None]
